FAERS Safety Report 21689928 (Version 1)
Quarter: 2022Q4

REPORT INFORMATION
  Report Type: Spontaneous
  Country: TW (occurrence: None)
  Receive Date: 20221206
  Receipt Date: 20221206
  Transmission Date: 20230113
  Serious: Yes (Death)
  Sender: FDA-Public Use
  Company Number: TW-ROCHE-3214926

PATIENT
  Age: 55 Year
  Sex: Male

DRUGS (16)
  1. RITUXIMAB [Suspect]
     Active Substance: RITUXIMAB
     Indication: Diffuse large B-cell lymphoma
     Dosage: R-CHOP
     Route: 065
     Dates: start: 20210721, end: 20220104
  2. RITUXIMAB [Suspect]
     Active Substance: RITUXIMAB
     Dosage: R-GDP
     Route: 065
     Dates: start: 20220801, end: 20220927
  3. RITUXIMAB [Suspect]
     Active Substance: RITUXIMAB
     Dosage: R2
     Route: 065
     Dates: start: 20210721, end: 20220104
  4. RITUXIMAB [Suspect]
     Active Substance: RITUXIMAB
     Dosage: R-ESHAP
     Route: 065
     Dates: start: 20210514, end: 20220617
  5. CYCLOPHOSPHAMIDE [Concomitant]
     Active Substance: CYCLOPHOSPHAMIDE
     Indication: Diffuse large B-cell lymphoma
     Dosage: R-CHOP
     Dates: start: 20210721, end: 20220104
  6. DOXORUBICIN [Concomitant]
     Active Substance: DOXORUBICIN
     Indication: Diffuse large B-cell lymphoma
     Dates: start: 20210721, end: 20220104
  7. VINCRISTINE [Concomitant]
     Active Substance: VINCRISTINE
     Indication: Diffuse large B-cell lymphoma
     Dosage: R-CHOP
     Dates: start: 20210721, end: 20220104
  8. PREDNISONE [Concomitant]
     Active Substance: PREDNISONE
     Indication: Diffuse large B-cell lymphoma
     Dosage: R-CHOP
     Dates: start: 20210721, end: 20220104
  9. ETOPOSIDE PHOSPHATE [Concomitant]
     Active Substance: ETOPOSIDE PHOSPHATE
     Indication: Diffuse large B-cell lymphoma
     Dosage: ESHAP
     Dates: start: 20220514, end: 20220617
  10. METHYLPREDNISOLONE [Concomitant]
     Active Substance: METHYLPREDNISOLONE
     Indication: Diffuse large B-cell lymphoma
     Dosage: ESHAP
     Dates: start: 20220514, end: 20220617
  11. CISPLATIN [Concomitant]
     Active Substance: CISPLATIN
     Indication: Diffuse large B-cell lymphoma
     Dosage: ESHAP
     Dates: start: 20220514, end: 20220617
  12. CISPLATIN [Concomitant]
     Active Substance: CISPLATIN
     Dosage: R-GDP
     Dates: start: 20220801, end: 20220927
  13. CYTARABINE [Concomitant]
     Active Substance: CYTARABINE
     Indication: Diffuse large B-cell lymphoma
     Dosage: ESHAP
     Dates: start: 20220514, end: 20220617
  14. GEMCITABINE [Concomitant]
     Active Substance: GEMCITABINE
     Indication: Diffuse large B-cell lymphoma
     Dosage: R-GDP
     Dates: start: 20220801, end: 20220927
  15. DEXAMETHASONE [Concomitant]
     Active Substance: DEXAMETHASONE
     Indication: Diffuse large B-cell lymphoma
     Dosage: R-GDP
     Dates: start: 20220801, end: 20220927
  16. LENALIDOMIDE [Concomitant]
     Active Substance: LENALIDOMIDE
     Indication: Diffuse large B-cell lymphoma
     Dosage: R2
     Dates: start: 20210721, end: 20220104

REACTIONS (2)
  - Disease progression [Unknown]
  - Death [Fatal]
